FAERS Safety Report 13098951 (Version 2)
Quarter: 2017Q1

REPORT INFORMATION
  Report Type: Report from Study
  Country: HU (occurrence: HU)
  Receive Date: 20170109
  Receipt Date: 20170214
  Transmission Date: 20170428
  Serious: Yes (Hospitalization)
  Sender: FDA-Public Use
  Company Number: HU-JNJFOC-20170101930

PATIENT
  Age: 63 Year
  Sex: Female
  Weight: 90 kg

DRUGS (13)
  1. ALAVERT ALLERGY [Concomitant]
     Active Substance: LORATADINE
     Route: 065
  2. METHOTREXATE. [Concomitant]
     Active Substance: METHOTREXATE
     Route: 065
  3. BISOPROLOL [Concomitant]
     Active Substance: BISOPROLOL
     Route: 065
  4. KALIUM-R [Concomitant]
     Route: 065
  5. DIAPREL [Concomitant]
     Active Substance: GLICLAZIDE
     Route: 065
  6. MODUXIN [Concomitant]
     Route: 065
  7. STELARA [Suspect]
     Active Substance: USTEKINUMAB
     Indication: PSORIASIS
     Route: 058
     Dates: start: 20111017
  8. FRONTIN [Concomitant]
     Active Substance: ALPRAZOLAM
     Route: 065
  9. ASPIRIN. [Concomitant]
     Active Substance: ASPIRIN
     Route: 065
  10. THIOGAMMA [Concomitant]
     Active Substance: THIOCTIC ACID
     Route: 065
  11. PANTOPRAZOL [Concomitant]
     Active Substance: PANTOPRAZOLE SODIUM
     Route: 065
  12. JANUMET [Concomitant]
     Active Substance: METFORMIN HYDROCHLORIDE\SITAGLIPTIN PHOSPHATE
     Route: 065
  13. LAPIDEN [Concomitant]
     Route: 065

REACTIONS (1)
  - Cerebrovascular accident [Recovered/Resolved]

NARRATIVE: CASE EVENT DATE: 20161023
